FAERS Safety Report 18841689 (Version 1)
Quarter: 2021Q1

REPORT INFORMATION
  Report Type: Other
  Country: IT (occurrence: IT)
  Receive Date: 20210204
  Receipt Date: 20210204
  Transmission Date: 20210419
  Serious: Yes (Death, Hospitalization, Other)
  Sender: FDA-Public Use
  Company Number: IT-ROCHE-2761048

PATIENT

DRUGS (17)
  1. RITUXIMAB. [Suspect]
     Active Substance: RITUXIMAB
     Indication: DIFFUSE LARGE B-CELL LYMPHOMA
     Dosage: ON DAY 0 (IN MATRIX REGIMEN).
     Route: 042
  2. THIOTEPA. [Suspect]
     Active Substance: THIOTEPA
     Indication: DIFFUSE LARGE B-CELL LYMPHOMA
     Dosage: 30 MIN INTRAVENOUS INFUSION, DAY 4
     Route: 042
  3. THIOTEPA. [Suspect]
     Active Substance: THIOTEPA
     Dosage: IN SALINE SOLUTION IN A 2 H INFUSION EVERY 12 H, DAYS ?5 AND ?4)
     Route: 042
  4. PREDNISONE. [Concomitant]
     Active Substance: PREDNISONE
     Indication: DIFFUSE LARGE B-CELL LYMPHOMA
     Dosage: ON DAYS 1?5
     Route: 048
  5. RITUXIMAB. [Suspect]
     Active Substance: RITUXIMAB
     Dosage: ON DAY 1 (IN RICE REGIMEN)
     Route: 042
  6. METHOTREXATE. [Suspect]
     Active Substance: METHOTREXATE
     Indication: DIFFUSE LARGE B-CELL LYMPHOMA
     Dosage: 3.5 G/M2, THE FIRST 0.5 G/M2 IN 15 MIN FOLLOWED BY 3 G/M2 IN A 3 H INTRAVENOUS INFUSION, DAY 1.
     Route: 042
  7. CYTARABINE. [Suspect]
     Active Substance: CYTARABINE
     Indication: DIFFUSE LARGE B-CELL LYMPHOMA
     Dosage: 2 G/M2 EVERY 12 H, IN 1 H INTRAVENOUS INFUSIONS, DAYS 2 AND 3
     Route: 042
  8. CARMUSTINE. [Suspect]
     Active Substance: CARMUSTINE
     Indication: DIFFUSE LARGE B-CELL LYMPHOMA
     Dosage: IN 500 ML GLUCOSE 5% SOLUTION IN A 1?2 H INFUSION, DAY ?6;
     Route: 042
  9. CYCLOPHOSPHAMIDE. [Concomitant]
     Active Substance: CYCLOPHOSPHAMIDE
     Indication: DIFFUSE LARGE B-CELL LYMPHOMA
     Dosage: BOLUS ON DAY 1;
     Route: 042
  10. IFOSFAMIDE. [Suspect]
     Active Substance: IFOSFAMIDE
     Indication: DIFFUSE LARGE B-CELL LYMPHOMA
     Dosage: 5 G/M2 IN 1000 ML IN A 24 H WITH MESNA SUPPORT, DAY 2;
     Route: 042
  11. DOXORUBICIN [Concomitant]
     Active Substance: DOXORUBICIN
     Indication: DIFFUSE LARGE B-CELL LYMPHOMA
     Dosage: BOLUS ON DAY 1;
     Route: 042
  12. METHOTREXATE. [Suspect]
     Active Substance: METHOTREXATE
     Dosage: ON DAY 5 OF EVERY COURSE OF MATRIX AND ON DAY 4 OF EVERY COURSE OF RICE
     Route: 037
  13. CYTARABINE. [Suspect]
     Active Substance: CYTARABINE
     Dosage: ON DAY 5 OF EVERY COURSE OF MATRIX AND ON DAY 4 OF EVERY COURSE OF RICE
     Route: 037
  14. ETOPOSIDE. [Suspect]
     Active Substance: ETOPOSIDE
     Indication: DIFFUSE LARGE B-CELL LYMPHOMA
     Dosage: IN 500?1000 ML OVER A 60 MIN , DAYS 1, 2, AND 3
     Route: 042
  15. CARBOPLATIN. [Suspect]
     Active Substance: CARBOPLATIN
     Indication: DIFFUSE LARGE B-CELL LYMPHOMA
     Dosage: 5 IN 500 ML IN A 1 H INTRAVENOUS INFUSION, DAY 2
     Route: 042
  16. VINCRISTINE [Concomitant]
     Active Substance: VINCRISTINE
     Indication: DIFFUSE LARGE B-CELL LYMPHOMA
     Dosage: 1.4 MG/M2 [MAXIMUM 2 MG] BOLUS ON DAY 1;
     Route: 042
  17. HYDROCORTISONE. [Suspect]
     Active Substance: HYDROCORTISONE
     Indication: DIFFUSE LARGE B-CELL LYMPHOMA
     Dosage: ON DAY 5 OF EVERY COURSE OF MATRIX AND ON DAY 4 OF EVERY COURSE OF RICE.
     Route: 037

REACTIONS (20)
  - Infection [Unknown]
  - Mucosal inflammation [Unknown]
  - Intestinal perforation [Unknown]
  - Neurotoxicity [Unknown]
  - Neutropenia [Unknown]
  - Febrile neutropenia [Unknown]
  - Pulmonary embolism [Unknown]
  - Atrial fibrillation [Unknown]
  - Ischaemic stroke [Unknown]
  - Haemorrhage [Unknown]
  - Acute kidney injury [Unknown]
  - Thrombocytopenia [Unknown]
  - Anaemia [Unknown]
  - Sepsis [Fatal]
  - Cardiotoxicity [Unknown]
  - Vomiting [Unknown]
  - Diarrhoea [Unknown]
  - Alanine aminotransferase increased [Unknown]
  - Nausea [Unknown]
  - Nephropathy toxic [Unknown]
